FAERS Safety Report 24267878 (Version 1)
Quarter: 2024Q3

REPORT INFORMATION
  Report Type: Spontaneous
  Country: US (occurrence: None)
  Receive Date: 20240829
  Receipt Date: 20240829
  Transmission Date: 20241016
  Serious: Yes (Life-Threatening, Hospitalization, Disabling)
  Sender: Public
  Company Number: None

PATIENT
  Age: 96 Year
  Sex: Female
  Weight: 51 kg

DRUGS (3)
  1. PAXLOVID [Suspect]
     Active Substance: NIRMATRELVIR\RITONAVIR
     Indication: COVID-19
     Dosage: FREQUENCY : TWICE A DAY;?
     Route: 048
     Dates: start: 20240822, end: 20240826
  2. MULTAQ [Suspect]
     Active Substance: DRONEDARONE
     Dates: start: 20010101
  3. METOPROLOL [Suspect]
     Active Substance: METOPROLOL
     Dates: start: 20010101

REACTIONS (6)
  - Drug interaction [None]
  - Overdose [None]
  - Bradycardia [None]
  - Atrioventricular block complete [None]
  - Anuria [None]
  - Toxicity to various agents [None]

NARRATIVE: CASE EVENT DATE: 20240826
